FAERS Safety Report 8941518 (Version 1)
Quarter: 2012Q4

REPORT INFORMATION
  Report Type: 
  Country: BR (occurrence: BR)
  Receive Date: 20121203
  Receipt Date: 20121203
  Transmission Date: 20130627
  Serious: Yes (Hospitalization)
  Sender: FDA-Public Use
  Company Number: BR-US-EMD SERONO, INC.-7178267

PATIENT
  Sex: Female

DRUGS (3)
  1. REBIF [Suspect]
     Indication: RELAPSING-REMITTING MULTIPLE SCLEROSIS
     Route: 058
     Dates: start: 20071130, end: 201211
  2. REBIF [Suspect]
     Route: 058
     Dates: start: 201211
  3. UNSPECIFIC MEDICINE [Concomitant]
     Indication: ANXIETY

REACTIONS (5)
  - Induration [Recovering/Resolving]
  - Joint stiffness [Recovering/Resolving]
  - Dysstasia [Recovering/Resolving]
  - Balance disorder [Recovering/Resolving]
  - Urinary tract infection [Recovered/Resolved]
